FAERS Safety Report 15478148 (Version 1)
Quarter: 2018Q4

REPORT INFORMATION
  Report Type: Spontaneous
  Country: US (occurrence: US)
  Receive Date: 20181002
  Receipt Date: 20181002
  Transmission Date: 20190205
  Serious: Yes (Hospitalization)
  Sender: FDA-Public Use
  Company Number: None

PATIENT
  Age: 61 Year
  Sex: Male

DRUGS (2)
  1. TRETINOIN. [Suspect]
     Active Substance: TRETINOIN
     Indication: ACUTE MYELOID LEUKAEMIA
     Dosage: ?          OTHER FREQUENCY:14 DAYS ON 14 OFF;?
     Route: 048
     Dates: start: 20180519
  2. HYDROCO/APAP, CIPROFLOXACIN, METRONIDAZOL [Concomitant]

REACTIONS (2)
  - Emergency care [None]
  - Surgery [None]

NARRATIVE: CASE EVENT DATE: 20180928
